FAERS Safety Report 20762969 (Version 1)
Quarter: 2022Q2

REPORT INFORMATION
  Report Type: Report from Study
  Country: CA (occurrence: CA)
  Receive Date: 20220428
  Receipt Date: 20220428
  Transmission Date: 20220721
  Serious: Yes (Death)
  Sender: FDA-Public Use
  Company Number: CA-NOVARTISPH-NVSC2022CA097775

PATIENT
  Age: 68 Year
  Sex: Male

DRUGS (2)
  1. ERELZI [Suspect]
     Active Substance: ETANERCEPT-SZZS
     Indication: Rheumatoid arthritis
     Dosage: 25 MG, Q2W
     Route: 058
     Dates: start: 20210922
  2. ERELZI [Suspect]
     Active Substance: ETANERCEPT-SZZS
     Dosage: 25 MG, Q2W
     Route: 058
     Dates: start: 20220314

REACTIONS (2)
  - Neoplasm malignant [Fatal]
  - Metastasis [Fatal]

NARRATIVE: CASE EVENT DATE: 20220320
